FAERS Safety Report 21220589 (Version 3)
Quarter: 2024Q3

REPORT INFORMATION
  Report Type: Report from Study
  Country: US (occurrence: US)
  Receive Date: 20220817
  Receipt Date: 20240709
  Transmission Date: 20241017
  Serious: Yes (Hospitalization)
  Sender: TAKEDA
  Company Number: US-TAKEDA-2021TUS028095

PATIENT
  Sex: Female

DRUGS (8)
  1. TEDUGLUTIDE [Suspect]
     Active Substance: TEDUGLUTIDE
     Indication: Short-bowel syndrome
     Dosage: 0.29 MILLILITER, QD
     Route: 058
     Dates: start: 202104
  2. TEDUGLUTIDE [Suspect]
     Active Substance: TEDUGLUTIDE
     Indication: Short-bowel syndrome
     Dosage: 0.29 MILLILITER, QD
     Route: 058
     Dates: start: 202104
  3. TEDUGLUTIDE [Suspect]
     Active Substance: TEDUGLUTIDE
     Indication: Short-bowel syndrome
     Dosage: 0.29 MILLILITER, QD
     Route: 058
     Dates: start: 202104
  4. TEDUGLUTIDE [Suspect]
     Active Substance: TEDUGLUTIDE
     Indication: Short-bowel syndrome
     Dosage: 0.29 MILLILITER, QD
     Route: 058
     Dates: start: 202104
  5. TEDUGLUTIDE [Suspect]
     Active Substance: TEDUGLUTIDE
     Dosage: 0.29 MILLILITER, QD
     Route: 058
     Dates: start: 20210407
  6. TEDUGLUTIDE [Suspect]
     Active Substance: TEDUGLUTIDE
     Dosage: 0.29 MILLILITER, QD
     Route: 058
     Dates: start: 20210407
  7. TEDUGLUTIDE [Suspect]
     Active Substance: TEDUGLUTIDE
     Dosage: 0.29 MILLILITER, QD
     Route: 058
     Dates: start: 20210407
  8. TEDUGLUTIDE [Suspect]
     Active Substance: TEDUGLUTIDE
     Dosage: 0.29 MILLILITER, QD
     Route: 058
     Dates: start: 20210407

REACTIONS (6)
  - Hospitalisation [Unknown]
  - Dizziness [Not Recovered/Not Resolved]
  - Feeling abnormal [Unknown]
  - Infusion site erythema [Unknown]
  - Infusion site mass [Unknown]
  - Infusion site urticaria [Recovering/Resolving]
